FAERS Safety Report 9295682 (Version 3)
Quarter: 2013Q4

REPORT INFORMATION
  Report Type: Spontaneous
  Country: US (occurrence: None)
  Receive Date: 20130107
  Receipt Date: 20131226
  Transmission Date: 20140711
  Serious: Yes (Disabling, Other)
  Sender: FDA-Public Use
  Company Number: PHHY2012US101428

PATIENT
  Age: 38 Year
  Sex: Female
  Weight: 73.9 kg

DRUGS (9)
  1. GILENYA [Suspect]
     Indication: RELAPSING-REMITTING MULTIPLE SCLEROSIS
     Route: 048
     Dates: start: 201105
  2. KLONOPIN (CLONAZEPAM) (TABLETS) [Concomitant]
  3. AMBIEN CR [Concomitant]
  4. AMBIEN [Concomitant]
  5. STEROIDS NOS [Concomitant]
  6. WELLBUTRIN (BUPROPION HYDROCHLORIDE) [Concomitant]
  7. NORCO [Concomitant]
  8. FORCET (SUMATRIPTAN SUCCINATE) [Concomitant]
  9. ZANTAC (RANITIDINE HYDROCHLORIDE) [Concomitant]

REACTIONS (4)
  - Herpes zoster [None]
  - Dyspnoea [None]
  - Pain [None]
  - Rash pustular [None]
